FAERS Safety Report 5025351-1 (Version None)
Quarter: 2006Q2

REPORT INFORMATION
  Report Type: 
  Country: None (occurrence: None)
  Receive Date: 20060426
  Receipt Date: 20060110
  Transmission Date: 20061013
  Serious: Yes (Other)
  Sender: FDA-Public Use
  Company Number: 2006005751

PATIENT
  Age: 58 Year
  Sex: Female

DRUGS (3)
  1. LYRICA [Suspect]
     Indication: FIBROMYALGIA
     Dosage: 225 MG (75 MG,3 IN 1 D)
  2. WELLBUTRIN [Suspect]
     Indication: ILL-DEFINED DISORDER
  3. SSRI (SSRI) [Suspect]
     Indication: ILL-DEFINED DISORDER

REACTIONS (4)
  - CONFUSIONAL STATE [None]
  - DRUG INTERACTION [None]
  - HYPOKINESIA [None]
  - MOVEMENT DISORDER [None]
